FAERS Safety Report 15537185 (Version 3)
Quarter: 2019Q1

REPORT INFORMATION
  Report Type: Report from Study
  Country: BE (occurrence: BE)
  Receive Date: 20181022
  Receipt Date: 20190117
  Transmission Date: 20190417
  Serious: Yes (Disabling)
  Sender: FDA-Public Use
  Company Number: BE-PFIZER INC-2018422014

PATIENT
  Age: 18 Year
  Sex: Male
  Weight: 55 kg

DRUGS (10)
  1. DAFALGAN [Concomitant]
     Active Substance: ACETAMINOPHEN
     Dosage: 1 G, AS NEEDED
  2. ADEK [Concomitant]
     Indication: CYSTIC FIBROSIS
     Dosage: 1 DF, 1X/DAY
     Route: 048
  3. PULMOZYME [Concomitant]
     Active Substance: DORNASE ALFA
     Indication: CYSTIC FIBROSIS
     Dosage: 1 DF, 1X/DAY
     Route: 055
     Dates: start: 199912
  4. CLOFAZIMINE [Concomitant]
     Active Substance: CLOFAZIMINE
     Indication: MYCOBACTERIUM ABSCESSUS INFECTION
     Dosage: 100 MG, 1X/DAY
     Route: 048
     Dates: start: 20180221
  5. LINEZOLID. [Suspect]
     Active Substance: LINEZOLID
     Indication: MYCOBACTERIUM ABSCESSUS INFECTION
     Dosage: 600 MG, 1X/DAY, TIME INTERVAL BETWEEN BEGINNING OF DRUG ADMINISTRATION AND START OF EVENT: 2 MONTHS
     Route: 048
     Dates: start: 20180221
  6. ARIKAYCE [Suspect]
     Active Substance: AMIKACIN
     Indication: MYCOBACTERIUM ABSCESSUS INFECTION
     Dosage: 590 MG, 1X/DAY
     Route: 055
     Dates: start: 201710, end: 201804
  7. HYPERTONIC SALINE SOLUTION [Concomitant]
     Active Substance: SODIUM CHLORIDE
     Indication: CYSTIC FIBROSIS
     Dosage: 4 ML, UNK
     Route: 055
     Dates: start: 199912
  8. BEDAQUILINE [Concomitant]
     Active Substance: BEDAQUILINE
     Indication: MYCOBACTERIUM ABSCESSUS INFECTION
     Dosage: 600 MG, WEEKLY (200 MG 3X IN 1 WEEK)
     Route: 048
     Dates: start: 20180221
  9. MINOCYCLINE [Concomitant]
     Active Substance: MINOCYCLINE\MINOCYCLINE HYDROCHLORIDE
     Indication: MYCOBACTERIUM ABSCESSUS INFECTION
     Dosage: 200 MG, 1X/DAY
     Route: 048
     Dates: start: 20180221
  10. CREON [Concomitant]
     Active Substance: PANCRELIPASE AMYLASE\PANCRELIPASE LIPASE\PANCRELIPASE PROTEASE
     Indication: CYSTIC FIBROSIS
     Dosage: 25000 UNK, 3X/DAY
     Route: 048
     Dates: start: 199912

REACTIONS (2)
  - Dyspnoea [Recovered/Resolved]
  - Cough [Recovered/Resolved]

NARRATIVE: CASE EVENT DATE: 20180110
